FAERS Safety Report 10572909 (Version 1)
Quarter: 2014Q4

REPORT INFORMATION
  Report Type: Spontaneous
  Country: US (occurrence: None)
  Receive Date: 20141106
  Receipt Date: 20141106
  Transmission Date: 20150529
  Serious: Yes (Hospitalization)
  Sender: FDA-Public Use
  Company Number: VAL_03503_2014

PATIENT
  Age: 29 Year
  Sex: Female

DRUGS (2)
  1. CARBAMAZEPINE(CARBAMAZEPINE) [Suspect]
     Active Substance: CARBAMAZEPINE
     Indication: GENERALISED TONIC-CLONIC SEIZURE
     Dates: start: 200309, end: 200312
  2. METHYLPREDNISOLONE. [Concomitant]
     Active Substance: METHYLPREDNISOLONE

REACTIONS (7)
  - Skin exfoliation [None]
  - Pneumonia [None]
  - Pruritus [None]
  - Optic neuritis [None]
  - Myelitis [None]
  - Hypogammaglobulinaemia [None]
  - B-lymphocyte count decreased [None]

NARRATIVE: CASE EVENT DATE: 200312
